FAERS Safety Report 4610512-3 (Version None)
Quarter: 2005Q2

REPORT INFORMATION
  Report Type: 
  Country: None (occurrence: None)
  Receive Date: 20050301
  Receipt Date: 20041209
  Transmission Date: 20051028
  Serious: No
  Sender: FDA-Public Use
  Company Number: WAES 0412USA01195

PATIENT
  Age: 66 Year
  Sex: Female

DRUGS (9)
  1. ZETIA [Suspect]
     Indication: BLOOD CHOLESTEROL INCREASED
     Dosage: 10 MG/PO
     Route: 048
     Dates: start: 20041101
  2. SYNTHROID [Concomitant]
  3. XALATAN [Concomitant]
  4. ASCORBIC ACID [Concomitant]
  5. CALCIUM (UNSPECIFIED) [Concomitant]
  6. DELPHINIDIN 3-GLUCOSIDE [Concomitant]
  7. GLUCOSAMINE [Concomitant]
  8. VITAMINS (UNSPECIFIED) [Concomitant]
  9. XANTHOPHYLL [Concomitant]

REACTIONS (3)
  - HEADACHE [None]
  - SINUSITIS [None]
  - VISION BLURRED [None]
